FAERS Safety Report 7860668 (Version 3)
Quarter: 2013Q1

REPORT INFORMATION
  Report Type: Spontaneous
  Country: PL (occurrence: None)
  Receive Date: 20110218
  Receipt Date: 20120622
  Transmission Date: 20140127
  Serious: Yes (Disabling, Other)
  Sender: FDA-Public Use
  Company Number: PL-021953

PATIENT
  Age: 59 Year
  Sex: Female
  Weight: 82.5 kg

DRUGS (5)
  1. CHLORAMBUCIL [Suspect]
     Dosage: 10 MGM2 AT DAYS 1-7 EVERY 21 DAYS ORAL
     Route: 048
     Dates: start: 20090817
  2. CALCIUM CARBONATE  (UNKNOWN) [Concomitant]
  3. ALFACALCIDOL (UNKNOWN) [Concomitant]
  4. OMEPRAZOLE [Concomitant]
  5. OAT EOMAX( UNKNOWN) [Concomitant]

REACTIONS (2)
  - Autoimmune haemolytic anaemia [None]
  - B-CELL SMALL LYMPHOCYTIC LYMPHOMA [None]
